FAERS Safety Report 6719324-8 (Version None)
Quarter: 2010Q2

REPORT INFORMATION
  Report Type: 
  Country: None (occurrence: None)
  Receive Date: 20100511
  Receipt Date: 20100503
  Transmission Date: 20101027
  Serious: Yes (Other)
  Sender: FDA-Public Use
  Company Number: PHHY2010CA15250

PATIENT
  Sex: Female

DRUGS (2)
  1. SANDOSTATIN LAR [Suspect]
     Indication: ACROMEGALY
     Dosage: 40 MG EVERY 4 WEEKS
     Route: 030
     Dates: start: 20070123
  2. CHEMOTHERAPEUTICS NOS [Concomitant]
     Dosage: UNK

REACTIONS (3)
  - NAUSEA [None]
  - NEOPLASM RECURRENCE [None]
  - PANCREATIC NEOPLASM [None]
